FAERS Safety Report 7639006-8 (Version None)
Quarter: 2011Q3

REPORT INFORMATION
  Report Type: 
  Country: None (occurrence: None)
  Receive Date: 20110727
  Receipt Date: 20110718
  Transmission Date: 20111222
  Serious: Yes (Other)
  Sender: FDA-Public Use
  Company Number: US-CEPHALON-2011003766

PATIENT
  Sex: Female

DRUGS (1)
  1. PROVIGIL [Suspect]
     Route: 048
     Dates: end: 20110704

REACTIONS (3)
  - DRY SKIN [None]
  - RASH PRURITIC [None]
  - HYPOACUSIS [None]
